FAERS Safety Report 7599250-5 (Version None)
Quarter: 2011Q3

REPORT INFORMATION
  Report Type: 
  Country: None (occurrence: None)
  Receive Date: 20110711
  Receipt Date: 20110706
  Transmission Date: 20111222
  Serious: Yes (Death, Hospitalization)
  Sender: FDA-Public Use
  Company Number: US-BAYER-2011-035582

PATIENT
  Age: 56 Year
  Sex: Female
  Weight: 64.5 kg

DRUGS (14)
  1. DECADRON [Concomitant]
     Dosage: REDUCED DOSE (REGIMEN UNKNOWN)
     Dates: start: 20110411
  2. FENTANYL [Concomitant]
  3. ASPIRIN [Concomitant]
  4. METOPROLOL TARTRATE [Concomitant]
  5. NEURONTIN [Concomitant]
  6. ERLOTINIB HYDROCHLORIDE [Suspect]
     Indication: GALLBLADDER CANCER METASTATIC
     Dosage: 100 MG, QD
     Route: 048
     Dates: start: 20110331, end: 20110410
  7. ZOFRAN [Concomitant]
  8. DILAUDID [Concomitant]
  9. SORAFENIB (RAF KINASE INHIBITOR) [Suspect]
     Indication: GALLBLADDER CANCER METASTATIC
     Dosage: 400 MG, BID
     Route: 048
     Dates: start: 20110331, end: 20110410
  10. COLACE [Concomitant]
  11. ALBUTEROL SULFATE AUTOHALER [Concomitant]
  12. ATIVAN [Concomitant]
  13. DECADRON [Concomitant]
     Dosage: UNK
     Dates: start: 20110301
  14. ATIVAN [Concomitant]
     Dosage: REDUCED DOSE (UNKNOWN REGIMEN)
     Dates: start: 20110411

REACTIONS (4)
  - MUSCULAR WEAKNESS [None]
  - GASTROINTESTINAL PERFORATION [None]
  - LETHARGY [None]
  - ABDOMINAL PAIN [None]
